FAERS Safety Report 9258911 (Version 2)
Quarter: 2013Q3

REPORT INFORMATION
  Report Type: Report from Study
  Country: BR (occurrence: BR)
  Receive Date: 20130426
  Receipt Date: 20130712
  Transmission Date: 20140515
  Serious: Yes (Other)
  Sender: FDA-Public Use
  Company Number: BR-ELI_LILLY_AND_COMPANY-BR201304006207

PATIENT
  Age: 77 Year
  Sex: Female
  Weight: 53.8 kg

DRUGS (7)
  1. TERIPARATIDE [Suspect]
     Indication: OSTEOPOROSIS
     Dosage: 20 UG, QD
     Route: 058
     Dates: start: 20130202
  2. TERIPARATIDE [Suspect]
     Dosage: UNK, QD
     Route: 065
  3. LOSARTAN [Concomitant]
     Indication: HYPERTENSION
     Dosage: UNK, QD
     Route: 048
  4. ATENOLOL [Concomitant]
     Indication: HYPERTENSION
     Dosage: UNK, QD
     Route: 048
  5. ALDACTONE                          /00006201/ [Concomitant]
     Indication: HYPERTENSION
     Dosage: 25 MG, QD
  6. DIURET                             /00011801/ [Concomitant]
     Indication: DYSPNOEA
     Dosage: UNK, UNKNOWN
     Route: 065
  7. FUROSEMIDA                         /00032601/ [Concomitant]
     Dosage: 20 MG, QD
     Route: 065

REACTIONS (9)
  - Cardiac disorder [Unknown]
  - Blood pressure increased [Unknown]
  - Arrhythmia [Recovered/Resolved]
  - Influenza [Not Recovered/Not Resolved]
  - Dysphonia [Unknown]
  - Drug dose omission [Unknown]
  - Blood pressure increased [Unknown]
  - Alopecia [Not Recovered/Not Resolved]
  - Muscle spasms [Recovered/Resolved]
